FAERS Safety Report 24082785 (Version 1)
Quarter: 2024Q3

REPORT INFORMATION
  Report Type: Spontaneous
  Country: JP (occurrence: JP)
  Receive Date: 20240712
  Receipt Date: 20240712
  Transmission Date: 20241017
  Serious: Yes (Hospitalization, Other)
  Sender: BRISTOL MYERS SQUIBB
  Company Number: JP-BRISTOL-MYERS SQUIBB COMPANY-BMS-2019-056118

PATIENT
  Age: 58 Year
  Sex: Female
  Weight: 42.4 kg

DRUGS (2)
  1. YERVOY [Suspect]
     Active Substance: IPILIMUMAB
     Indication: Metastatic renal cell carcinoma
     Dosage: 42 MG
     Route: 041
     Dates: start: 20190301, end: 20190415
  2. OPDIVO [Suspect]
     Active Substance: NIVOLUMAB
     Indication: Metastatic renal cell carcinoma
     Dosage: 240 MG
     Route: 041
     Dates: start: 20190301, end: 20190415

REACTIONS (3)
  - Immune-mediated hepatitis [Recovering/Resolving]
  - Thyroiditis [Not Recovered/Not Resolved]
  - Immune-mediated enterocolitis [Unknown]

NARRATIVE: CASE EVENT DATE: 20190325
